FAERS Safety Report 10608670 (Version 1)
Quarter: 2014Q4

REPORT INFORMATION
  Report Type: Spontaneous
  Country: GB (occurrence: GB)
  Receive Date: 20141125
  Receipt Date: 20141125
  Transmission Date: 20150529
  Serious: Yes (Hospitalization, Other)
  Sender: FDA-Public Use
  Company Number: GB-ACTAVIS-2014-25374

PATIENT
  Age: 73 Year
  Sex: Male

DRUGS (7)
  1. CANDESARTAN (UNKNOWN) [Suspect]
     Active Substance: CANDESARTAN
     Indication: LEFT VENTRICULAR HYPERTROPHY
     Dosage: 8 MG, DAILY
     Route: 048
     Dates: end: 20110625
  2. SPIRONOLACTONE (UNKNOWN) [Suspect]
     Active Substance: SPIRONOLACTONE
     Indication: LEFT VENTRICULAR HYPERTROPHY
     Dosage: 25 MG, DAILY
     Route: 048
     Dates: end: 20110625
  3. GLYCERYL TRINITRATE [Concomitant]
     Active Substance: NITROGLYCERIN
     Indication: PRODUCT USED FOR UNKNOWN INDICATION
     Dosage: UNK, PRN
     Route: 065
  4. BISOPROLOL [Concomitant]
     Active Substance: BISOPROLOL
     Indication: PRODUCT USED FOR UNKNOWN INDICATION
     Dosage: 7.5 MG, QAM
     Route: 065
  5. PRAVASTATIN [Concomitant]
     Active Substance: PRAVASTATIN\PRAVASTATIN SODIUM
     Indication: PRODUCT USED FOR UNKNOWN INDICATION
     Dosage: 40 MG, QPM
     Route: 065
  6. FUROSEMIDE (UNKNOWN) [Suspect]
     Active Substance: FUROSEMIDE
     Indication: LEFT VENTRICULAR HYPERTROPHY
     Dosage: 40 MG, BID
     Route: 048
     Dates: end: 20110625
  7. ASPIRIN. [Concomitant]
     Active Substance: ASPIRIN
     Indication: PRODUCT USED FOR UNKNOWN INDICATION
     Dosage: 75 MG, QAM
     Route: 065

REACTIONS (5)
  - Hypotension [Recovered/Resolved]
  - Rales [Unknown]
  - Acute kidney injury [Recovered/Resolved]
  - Hyperkalaemia [Recovered/Resolved]
  - Dyspnoea [Recovered/Resolved]

NARRATIVE: CASE EVENT DATE: 20110625
